FAERS Safety Report 8770482 (Version 1)
Quarter: 2012Q4

REPORT INFORMATION
  Report Type: 
  Country: US (occurrence: US)
  Receive Date: 20120906
  Receipt Date: 20120906
  Transmission Date: 20130627
  Serious: Yes (Disabling)
  Sender: FDA-Public Use
  Company Number: US-009507513-1208USA012592

PATIENT

DRUGS (1)
  1. PROPECIA [Suspect]
     Indication: ANDROGENETIC ALOPECIA

REACTIONS (5)
  - Cognitive disorder [Unknown]
  - Sexual dysfunction [Unknown]
  - Balance disorder [Unknown]
  - Depression [Unknown]
  - Anxiety [Unknown]
